FAERS Safety Report 20736851 (Version 2)
Quarter: 2022Q2

REPORT INFORMATION
  Report Type: Spontaneous
  Country: US (occurrence: US)
  Receive Date: 20220421
  Receipt Date: 20220624
  Transmission Date: 20220721
  Serious: No
  Sender: FDA-Public Use
  Company Number: US-PFIZER INC-202200550284

PATIENT
  Age: 24 Year
  Sex: Male

DRUGS (1)
  1. XELJANZ XR [Suspect]
     Active Substance: TOFACITINIB CITRATE
     Dosage: 11 MG, 1X/DAY
     Dates: start: 20220118

REACTIONS (5)
  - Product dose omission issue [Unknown]
  - Dyspepsia [Unknown]
  - Body tinea [Unknown]
  - Fungal infection [Unknown]
  - Blood cholesterol increased [Unknown]
